FAERS Safety Report 24542875 (Version 2)
Quarter: 2025Q1

REPORT INFORMATION
  Report Type: Spontaneous
  Country: US (occurrence: US)
  Receive Date: 20241024
  Receipt Date: 20250201
  Transmission Date: 20250409
  Serious: No
  Sender: GLENMARK
  Company Number: US-GLENMARK PHARMACEUTICALS-2024GMK093077

PATIENT

DRUGS (2)
  1. RYALTRIS [Suspect]
     Active Substance: MOMETASONE FUROATE MONOHYDRATE\OLOPATADINE HYDROCHLORIDE
     Indication: Hypersensitivity
     Dosage: 2 DOSAGE FORM, BID (TWO SPRAYS IN EACH NOSTRIL TWICE DAILY) (BATCH NUMBER 14230425 AND EXPIRY DATE N
     Route: 045
     Dates: start: 202407
  2. RYALTRIS [Suspect]
     Active Substance: MOMETASONE FUROATE MONOHYDRATE\OLOPATADINE HYDROCHLORIDE
     Dosage: 2 DOSAGE FORM, BID (TWO SPRAYS IN EACH NOSTRIL TWICE DAILY) (BATCH NUMBER 14230425 AND EXPIRY DATE N
     Route: 045
     Dates: start: 202407

REACTIONS (4)
  - Product prescribing issue [Unknown]
  - Drug dose omission by device [Unknown]
  - Device occlusion [Unknown]
  - Product deposit [Unknown]

NARRATIVE: CASE EVENT DATE: 20240701
